FAERS Safety Report 8237494-X (Version None)
Quarter: 2012Q1

REPORT INFORMATION
  Report Type: 
  Country: None (occurrence: None)
  Receive Date: 20120327
  Receipt Date: 20120323
  Transmission Date: 20120608
  Serious: Yes (Death, Hospitalization)
  Sender: FDA-Public Use
  Company Number: PHHY2012GR025983

PATIENT
  Age: 74 Year
  Sex: Male

DRUGS (2)
  1. FLUCONAZOLE [Suspect]
  2. VORICONAZOLE [Suspect]
     Indication: TRICHOSPORON INFECTION

REACTIONS (2)
  - DEATH [None]
  - DRUG INEFFECTIVE [None]
